FAERS Safety Report 4372814-8 (Version None)
Quarter: 2004Q2

REPORT INFORMATION
  Report Type: 
  Country: None (occurrence: None)
  Receive Date: 20040608
  Receipt Date: 20040512
  Transmission Date: 20050107
  Serious: Yes (Death)
  Sender: FDA-Public Use
  Company Number: PHBS2004JP06398

PATIENT
  Age: 27 Year
  Sex: Male

DRUGS (5)
  1. SIMULECT [Suspect]
     Indication: RENAL TRANSPLANT
     Dosage: 20 MG, ONCE/SINGLE
     Route: 042
     Dates: start: 20030313, end: 20030313
  2. SIMULECT [Suspect]
     Dosage: 20 MG, ONCE/SINGLE
     Route: 042
     Dates: start: 20030316, end: 20030316
  3. TACROLIMUS [Suspect]
     Route: 065
  4. PREDNISOLONE [Suspect]
     Route: 065
  5. CELLCEPT [Suspect]
     Route: 065

REACTIONS (7)
  - ANOREXIA [None]
  - DIARRHOEA [None]
  - EPSTEIN-BARR VIRUS INFECTION [None]
  - LYMPHOMA [None]
  - LYMPHOPROLIFERATIVE DISORDER [None]
  - PAIN [None]
  - PYREXIA [None]
